FAERS Safety Report 5799062-9 (Version None)
Quarter: 2008Q3

REPORT INFORMATION
  Report Type: 
  Country: None (occurrence: None)
  Receive Date: 20080702
  Receipt Date: 20080613
  Transmission Date: 20090109
  Serious: No
  Sender: FDA-Public Use
  Company Number: US-BOEHRINGER INGELHEIM GMBH, GERMANY-2008-BP-09260BP

PATIENT
  Sex: Female

DRUGS (10)
  1. AGGRENOX [Suspect]
     Indication: CEREBROVASCULAR ACCIDENT PROPHYLAXIS
     Route: 048
     Dates: start: 20040101
  2. BONIVA [Concomitant]
     Indication: OSTEOPOROSIS
  3. PLAVIX [Concomitant]
     Indication: CARDIAC DISORDER
  4. VYTORIN [Concomitant]
     Indication: BLOOD CHOLESTEROL INCREASED
  5. NEXIUM [Concomitant]
     Indication: GASTROOESOPHAGEAL REFLUX DISEASE
  6. NITROGLYCERIN [Concomitant]
     Indication: ANGINA PECTORIS
     Route: 060
  7. ISOSORBIDE DINITRATE [Concomitant]
     Indication: CARDIAC DISORDER
  8. NYSPAN(NIACIN) [Concomitant]
     Indication: CARDIAC DISORDER
  9. METOPROLOL SUCCINATE [Concomitant]
     Indication: CARDIAC DISORDER
  10. REGLAN [Concomitant]

REACTIONS (3)
  - ABDOMINAL DISTENSION [None]
  - ABDOMINAL PAIN [None]
  - DIARRHOEA [None]
